FAERS Safety Report 21609353 (Version 1)
Quarter: 2022Q4

REPORT INFORMATION
  Report Type: Spontaneous
  Country: CN (occurrence: CN)
  Receive Date: 20221117
  Receipt Date: 20221117
  Transmission Date: 20230112
  Serious: Yes (Other)
  Sender: FDA-Public Use
  Company Number: CN-MLMSERVICE-20221103-3897868-1

PATIENT
  Age: 50 Year
  Sex: Male

DRUGS (3)
  1. PACLITAXEL [Suspect]
     Active Substance: PACLITAXEL
     Indication: Nasopharyngeal cancer stage IV
     Dosage: 260 MG/M2, CYCLIC (EVERY 3 WEEKS FOR FIVE CYCLES)
     Dates: start: 202101, end: 202104
  2. TISLELIZUMAB [Suspect]
     Active Substance: TISLELIZUMAB
     Indication: Nasopharyngeal cancer stage IV
     Dosage: 200 MG, CYCLIC (EVERY 3 WEEKS FOR FIVE CYCLES)
     Dates: start: 202101, end: 202104
  3. CISPLATIN [Suspect]
     Active Substance: CISPLATIN
     Indication: Nasopharyngeal cancer stage IV
     Dosage: 80 MG/M2, CYCLIC (EVERY 3 WEEKS FOR FIVE CYCLES)
     Dates: start: 202101, end: 202104

REACTIONS (2)
  - Myelosuppression [Recovered/Resolved]
  - Gastrointestinal disorder [Recovered/Resolved]

NARRATIVE: CASE EVENT DATE: 20210101
